FAERS Safety Report 19515145 (Version 1)
Quarter: 2021Q3

REPORT INFORMATION
  Report Type: Spontaneous
  Country: US (occurrence: US)
  Receive Date: 20210709
  Receipt Date: 20210709
  Transmission Date: 20211014
  Serious: Yes (Other)
  Sender: FDA-Public Use
  Company Number: US-SA-2021SA225314

PATIENT
  Age: 37 Year
  Sex: Female

DRUGS (2)
  1. ALEMTUZUMAB [Suspect]
     Active Substance: ALEMTUZUMAB
     Dosage: UNK
  2. ALEMTUZUMAB [Suspect]
     Active Substance: ALEMTUZUMAB
     Dosage: UNK

REACTIONS (6)
  - Multiple sclerosis [Unknown]
  - Cognitive disorder [Unknown]
  - Drug intolerance [Unknown]
  - Loss of employment [Unknown]
  - Drug hypersensitivity [Unknown]
  - Multiple sclerosis relapse [Unknown]
